FAERS Safety Report 9471693 (Version 1)
Quarter: 2013Q3

REPORT INFORMATION
  Report Type: Spontaneous
  Country: DE (occurrence: None)
  Receive Date: 20130819
  Receipt Date: 20130819
  Transmission Date: 20140515
  Serious: Yes (Hospitalization)
  Sender: FDA-Public Use
  Company Number: DE-012590

PATIENT
  Age: 52 Year
  Sex: Female

DRUGS (1)
  1. PICOPREP [Suspect]
     Indication: BOWEL PREPARATION
     Dosage: (2XL BTL. ORAL)
     Route: 048

REACTIONS (4)
  - Dizziness [None]
  - Hyperventilation [None]
  - Nausea [None]
  - Vomiting [None]
